FAERS Safety Report 15845842 (Version 1)
Quarter: 2019Q1

REPORT INFORMATION
  Report Type: Spontaneous
  Country: US (occurrence: US)
  Receive Date: 20190120
  Receipt Date: 20190120
  Transmission Date: 20190417
  Serious: No
  Sender: FDA-Public Use
  Company Number: US-DEXPHARM-20180016

PATIENT
  Age: 80 Year
  Sex: Female
  Weight: 53.51 kg

DRUGS (4)
  1. ALEVE [Concomitant]
     Active Substance: NAPROXEN SODIUM
     Indication: BACK PAIN
     Dosage: UNK, PRN
     Route: 048
     Dates: start: 2016
  2. OMEPRAZOLE DELAYED RELEASE TABLETS 20 MG [Suspect]
     Active Substance: OMEPRAZOLE
     Indication: DYSPEPSIA
     Dosage: 20 MG, QD
     Route: 048
     Dates: start: 2016, end: 201801
  3. SIMVASTATIN. [Concomitant]
     Active Substance: SIMVASTATIN
     Indication: BLOOD CHOLESTEROL
     Dosage: UNK, QHS
     Route: 065
     Dates: start: 2014
  4. TRAMADOL. [Concomitant]
     Active Substance: TRAMADOL
     Indication: BACK PAIN
     Dosage: UNK, PRN
     Route: 048
     Dates: start: 201711

REACTIONS (2)
  - Drug effect incomplete [Recovered/Resolved]
  - Spinal column stenosis [Recovering/Resolving]

NARRATIVE: CASE EVENT DATE: 2016
